FAERS Safety Report 6711514-3 (Version None)
Quarter: 2010Q2

REPORT INFORMATION
  Report Type: 
  Country: None (occurrence: None)
  Receive Date: 20100505
  Receipt Date: 20100421
  Transmission Date: 20101027
  Serious: Yes (Other)
  Sender: FDA-Public Use
  Company Number: PHHY2010US22920

PATIENT
  Sex: Female
  Weight: 168 kg

DRUGS (2)
  1. EXFORGE HCT [Suspect]
     Indication: HYPERTENSION
     Dosage: 160/5/12.5 MG
     Route: 048
     Dates: start: 20100402, end: 20100411
  2. INDERAL [Concomitant]
     Indication: HEADACHE
     Dosage: 20 MG, BID
     Route: 048

REACTIONS (1)
  - RECTAL HAEMORRHAGE [None]
